FAERS Safety Report 4914984-6 (Version None)
Quarter: 2006Q1

REPORT INFORMATION
  Report Type: 
  Country: None (occurrence: None)
  Receive Date: 20060217
  Receipt Date: 20060212
  Transmission Date: 20060701
  Serious: Yes (Other)
  Sender: FDA-Public Use
  Company Number: PHEH2006US02067

PATIENT
  Age: 91 Year
  Sex: Female
  Weight: 54.421 kg

DRUGS (1)
  1. DIOVAN [Suspect]
     Indication: HYPERTENSION
     Dosage: 160 MG, QD
     Route: 048
     Dates: start: 20060117, end: 20060202

REACTIONS (3)
  - HALLUCINATION [None]
  - HALLUCINATION, VISUAL [None]
  - PARANOIA [None]
